FAERS Safety Report 18502236 (Version 1)
Quarter: 2020Q4

REPORT INFORMATION
  Report Type: Spontaneous
  Country: US (occurrence: US)
  Receive Date: 20201113
  Receipt Date: 20201113
  Transmission Date: 20210114
  Serious: Yes (Other)
  Sender: FDA-Public Use
  Company Number: US-SUNOVION-2020SUN003334

PATIENT
  Age: 74 Year
  Sex: Male

DRUGS (1)
  1. KYNMOBI [Suspect]
     Active Substance: APOMORPHINE HYDROCHLORIDE
     Dosage: UNK
     Route: 060

REACTIONS (6)
  - Blood pressure fluctuation [Unknown]
  - Hallucination [Unknown]
  - Head injury [Unknown]
  - Fall [Unknown]
  - Tremor [Unknown]
  - Headache [Unknown]

NARRATIVE: CASE EVENT DATE: 20201102
